FAERS Safety Report 6547116-1 (Version None)
Quarter: 2009Q4

REPORT INFORMATION
  Report Type: 
  Country: None (occurrence: None)
  Receive Date: 20091215
  Receipt Date: 20081112
  Transmission Date: 20100525
  Serious: Yes (Other)
  Sender: FDA-Public Use
  Company Number: FEI2008-1908

PATIENT
  Age: 24 Year
  Sex: Female
  Weight: 67.1324 kg

DRUGS (2)
  1. PARAGARD T 380A [Suspect]
     Indication: CONTRACEPTION
     Dosage: INTRA-UTERINE
     Route: 015
     Dates: start: 20060831, end: 20081106
  2. MULTIVITAMIN [Concomitant]

REACTIONS (4)
  - ABDOMINAL PAIN LOWER [None]
  - ADNEXA UTERI MASS [None]
  - DIZZINESS [None]
  - UTERINE PERFORATION [None]
